FAERS Safety Report 6022079-6 (Version None)
Quarter: 2008Q4

REPORT INFORMATION
  Report Type: 
  Country: None (occurrence: None)
  Receive Date: 20081223
  Receipt Date: 20081215
  Transmission Date: 20090506
  Serious: Yes (Death)
  Sender: FDA-Public Use
  Company Number: 430021M08USA

PATIENT
  Age: 59 Year
  Sex: Female

DRUGS (2)
  1. NOVANTRONE (NOVANTRONE  HYDROCHLORIDE) [Suspect]
     Indication: MULTIPLE SCLEROSIS
  2. COPAXONE [Concomitant]

REACTIONS (2)
  - ACUTE MYELOID LEUKAEMIA [None]
  - LEUKAEMIA RECURRENT [None]
